FAERS Safety Report 24757373 (Version 2)
Quarter: 2025Q1

REPORT INFORMATION
  Report Type: Report from Study
  Country: US (occurrence: US)
  Receive Date: 20241220
  Receipt Date: 20250219
  Transmission Date: 20250409
  Serious: Yes (Other)
  Sender: RECORDATI
  Company Number: US-RECORDATI RARE DISEASE INC.-2024009826

PATIENT
  Sex: Female

DRUGS (3)
  1. SIGNIFOR LAR [Suspect]
     Active Substance: PASIREOTIDE PAMOATE
     Indication: Product used for unknown indication
  2. PREDNISONE [Suspect]
     Active Substance: PREDNISONE
     Indication: Product used for unknown indication
  3. OCTREOTIDE [Concomitant]
     Active Substance: OCTREOTIDE
     Indication: Product used for unknown indication

REACTIONS (10)
  - Fall [Unknown]
  - Hypoaesthesia [Unknown]
  - Ligament rupture [Unknown]
  - Post-traumatic neck syndrome [Unknown]
  - Neck pain [Unknown]
  - Vitamin D decreased [Unknown]
  - Brain fog [Unknown]
  - Visual impairment [Unknown]
  - Blood glucose abnormal [Not Recovered/Not Resolved]
  - Therapeutic product effect incomplete [Recovered/Resolved]

NARRATIVE: CASE EVENT DATE: 20241001
